FAERS Safety Report 10578359 (Version 1)
Quarter: 2014Q4

REPORT INFORMATION
  Report Type: Spontaneous
  Country: CA (occurrence: CA)
  Receive Date: 20141112
  Receipt Date: 20141112
  Transmission Date: 20150529
  Serious: Yes (Hospitalization)
  Sender: FDA-Public Use
  Company Number: PHHY2014CA142351

PATIENT
  Age: 48 Year
  Sex: Female

DRUGS (2)
  1. EXEMESTANE. [Concomitant]
     Active Substance: EXEMESTANE
     Indication: BREAST CANCER
     Dosage: 25 MG, QD
     Route: 065
     Dates: start: 201308
  2. EVEROLIMUS [Suspect]
     Active Substance: EVEROLIMUS
     Indication: BREAST CANCER
     Dosage: 10 MG, QD
     Route: 065
     Dates: start: 201308, end: 20130923

REACTIONS (12)
  - Anaemia [Recovering/Resolving]
  - Melaena [Recovering/Resolving]
  - Gastric ulcer [Recovered/Resolved]
  - Activated partial thromboplastin time prolonged [Recovering/Resolving]
  - Condition aggravated [Recovering/Resolving]
  - Gastrointestinal haemorrhage [Recovered/Resolved]
  - Gastric antral vascular ectasia [Recovering/Resolving]
  - Erythema [Recovering/Resolving]
  - Pallor [Recovering/Resolving]
  - Fatigue [Recovering/Resolving]
  - Haematochezia [Recovering/Resolving]
  - Thrombocytopenia [Recovering/Resolving]
